FAERS Safety Report 4340606-1 (Version None)
Quarter: 2004Q2

REPORT INFORMATION
  Report Type: 
  Country: None (occurrence: None)
  Receive Date: 20040414
  Receipt Date: 20040324
  Transmission Date: 20050107
  Serious: Yes (Hospitalization)
  Sender: FDA-Public Use
  Company Number: 001#1#2004-00069

PATIENT
  Age: 75 Year
  Sex: Male

DRUGS (1)
  1. ALPROSTADIL [Suspect]
     Indication: PERIPHERAL OCCLUSIVE DISEASE
     Dosage: 1.N.R.
     Route: 041
     Dates: start: 20040311, end: 20040323

REACTIONS (2)
  - CHILLS [None]
  - MUSCLE CRAMP [None]
